FAERS Safety Report 7052001-5 (Version None)
Quarter: 2010Q4

REPORT INFORMATION
  Report Type: 
  Country: None (occurrence: None)
  Receive Date: 20101019
  Receipt Date: 20101013
  Transmission Date: 20110411
  Serious: Yes (Disabling)
  Sender: FDA-Public Use
  Company Number: B0672857A

PATIENT
  Sex: Female
  Weight: 56 kg

DRUGS (3)
  1. TYKERB [Suspect]
     Indication: BREAST CANCER
     Dosage: 1250MG PER DAY
     Route: 048
     Dates: start: 20090905
  2. XELODA [Suspect]
     Dosage: 1500MG PER DAY
     Route: 048
     Dates: start: 20090905
  3. GASPORT [Concomitant]
     Indication: GASTRITIS PROPHYLAXIS
     Route: 048
     Dates: start: 20090905

REACTIONS (1)
  - MUSCLE SPASMS [None]
